FAERS Safety Report 19972757 (Version 1)
Quarter: 2021Q4

REPORT INFORMATION
  Report Type: Spontaneous
  Country: CA (occurrence: CA)
  Receive Date: 20211019
  Receipt Date: 20211019
  Transmission Date: 20220303
  Serious: Yes (Other)
  Sender: FDA-Public Use
  Company Number: CA-SEAGEN-2021SGN05264

PATIENT
  Age: 80 Year
  Sex: Male

DRUGS (1)
  1. ADCETRIS [Suspect]
     Active Substance: BRENTUXIMAB VEDOTIN
     Indication: Cutaneous T-cell lymphoma
     Dosage: 1.8 MG/KG, Q3WEEKS
     Route: 042

REACTIONS (3)
  - Febrile neutropenia [Unknown]
  - Disseminated varicella zoster virus infection [Unknown]
  - Alopecia [Unknown]
